FAERS Safety Report 6426141-5 (Version None)
Quarter: 2009Q4

REPORT INFORMATION
  Report Type: 
  Country: None (occurrence: None)
  Receive Date: 20091023
  Receipt Date: 20091012
  Transmission Date: 20100525
  Serious: Yes (Other)
  Sender: FDA-Public Use
  Company Number: B0598555A

PATIENT
  Age: 36 Year
  Sex: Female

DRUGS (8)
  1. LAMIVUDINE [Suspect]
     Indication: HIV INFECTION
  2. ZIDOVUDINE [Suspect]
     Indication: HIV INFECTION
  3. DIDANOSINE (FORMULATION UNKNOWN) (DIADANOSINE) [Suspect]
     Indication: HIV INFECTION
  4. STAVUDINE [Suspect]
     Indication: HIV INFECTION
  5. NEVIRAPINE [Suspect]
     Indication: HIV INFECTION
  6. EFAVIRENZ [Suspect]
     Indication: HIV INFECTION
  7. NELFINAVIR MESYLATE (FORMULATION UNKNOWN) (NEFINAVIR MESYLATE) [Suspect]
     Indication: HIV INFECTION
  8. INDINIVIR SULFATE [Suspect]
     Indication: HIV INFECTION

REACTIONS (8)
  - BIOPSY LIVER ABNORMAL [None]
  - GASTRIC DISORDER [None]
  - HAEMORRHAGE [None]
  - INJURY [None]
  - LIVER DISORDER [None]
  - PORTAL HYPERTENSION [None]
  - SPLENOMEGALY [None]
  - VARICES OESOPHAGEAL [None]
